FAERS Safety Report 6733694-6 (Version None)
Quarter: 2010Q2

REPORT INFORMATION
  Report Type: 
  Country: None (occurrence: None)
  Receive Date: 20100520
  Receipt Date: 20100517
  Transmission Date: 20101027
  Serious: Yes (Disabling, Other)
  Sender: FDA-Public Use
  Company Number: GB-BAYER-201024904GPV

PATIENT
  Age: 70 Year
  Sex: Male

DRUGS (10)
  1. CIPROFLOXACIN [Interacting]
     Indication: PERIORBITAL CELLULITIS
     Dosage: TOTAL DAILY DOSE: 1500 MG  UNIT DOSE: 750 MG
     Route: 048
  2. METRONIDAZOLE [Interacting]
     Indication: PERIORBITAL CELLULITIS
     Dosage: TOTAL DAILY DOSE: 1200 MG  UNIT DOSE: 400 MG
     Route: 048
  3. CLOPIDOGREL [Interacting]
     Indication: CHEST PAIN
  4. CLOPIDOGREL [Interacting]
  5. ASPIRIN [Suspect]
     Indication: CHEST PAIN
  6. ASPIRIN [Interacting]
  7. ERYTHROMYCIN [Interacting]
     Indication: PERIORBITAL CELLULITIS
     Dosage: UNIT DOSE: 250 MG
  8. WARFARIN SODIUM [Interacting]
     Indication: PULMONARY EMBOLISM
  9. MEROPENEM [Interacting]
     Indication: PERIORBITAL CELLULITIS
     Dosage: TOTAL DAILY DOSE: 4 G  UNIT DOSE: 2 G
     Route: 042
  10. TEICOPLANIN [Interacting]
     Indication: PERIORBITAL CELLULITIS
     Dosage: TOTAL DAILY DOSE: 400 MG  UNIT DOSE: 400 MG
     Route: 030

REACTIONS (8)
  - DECREASED APPETITE [None]
  - EYE PAIN [None]
  - HEADACHE [None]
  - HYPHAEMA [None]
  - INTERNATIONAL NORMALISED RATIO INCREASED [None]
  - INTRAOCULAR PRESSURE INCREASED [None]
  - NAUSEA [None]
  - PYREXIA [None]
